FAERS Safety Report 5706321-4 (Version None)
Quarter: 2008Q2

REPORT INFORMATION
  Report Type: 
  Country: None (occurrence: None)
  Receive Date: 20080409
  Receipt Date: 20071026
  Transmission Date: 20081010
  Serious: Yes (Hospitalization)
  Sender: FDA-Public Use
  Company Number: 157

PATIENT
  Sex: Female

DRUGS (4)
  1. FAZACLO ODT [Suspect]
     Indication: BORDERLINE PERSONALITY DISORDER
     Dosage: 300 MG PO DAILY
     Route: 048
     Dates: start: 20060806, end: 20070411
  2. DEPAKOTE [Concomitant]
  3. CARBAMAZEPINE [Concomitant]
  4. NARDIL [Concomitant]

REACTIONS (1)
  - PNEUMONIA [None]
